FAERS Safety Report 18108931 (Version 7)
Quarter: 2022Q1

REPORT INFORMATION
  Report Type: Spontaneous
  Country: US (occurrence: US)
  Receive Date: 20200804
  Receipt Date: 20220210
  Transmission Date: 20220423
  Serious: Yes (Other)
  Sender: FDA-Public Use
  Company Number: US-PFIZER INC-2020291434

PATIENT
  Age: 81 Year
  Sex: Female
  Weight: 63.96 kg

DRUGS (10)
  1. CELEBREX [Suspect]
     Active Substance: CELECOXIB
     Indication: Osteoporosis
     Dosage: 200 MG, 1X/DAY
     Route: 048
  2. CELEBREX [Suspect]
     Active Substance: CELECOXIB
     Indication: Pain
     Dosage: 200 MG, DAILY (DISPENSE QUANTITY: 90 CAPSULE, REFILL: 1, TAKE 1 CAPSULE BY MOUTH DAILY)
     Route: 048
     Dates: start: 20210729
  3. FORTEO [Concomitant]
     Active Substance: TERIPARATIDE
     Indication: Bone disorder
     Dosage: 20 UG, DAILY (20 MCG INJECTION INTO STOMACH EVERY MORNING)
     Dates: start: 2019
  4. ABILIFY [Concomitant]
     Active Substance: ARIPIPRAZOLE
     Dosage: 2 MG
  5. CLONAZEPAM [Concomitant]
     Active Substance: CLONAZEPAM
     Dosage: 0.5 MG
  6. CALCIUM [Concomitant]
     Active Substance: CALCIUM
     Dosage: 500 MG
  7. LEVOTHYROXINE [Concomitant]
     Active Substance: LEVOTHYROXINE
     Dosage: 75 MG
  8. ALPHAGAN P [Concomitant]
     Active Substance: BRIMONIDINE TARTRATE
     Dosage: 0.2 ONE DROP LEFT EYE
  9. BRIMONIDINE TARTRATE [Concomitant]
     Active Substance: BRIMONIDINE TARTRATE
     Dosage: UNK
  10. RESTASIS [Concomitant]
     Active Substance: CYCLOSPORINE
     Dosage: UNK

REACTIONS (5)
  - Blindness [Unknown]
  - Off label use [Unknown]
  - Visual impairment [Unknown]
  - Housebound [Unknown]
  - Hypoacusis [Unknown]
